FAERS Safety Report 5657622-X (Version None)
Quarter: 2008Q1

REPORT INFORMATION
  Report Type: 
  Country: None (occurrence: None)
  Receive Date: 20080307
  Receipt Date: 20080307
  Transmission Date: 20080703
  Serious: Yes (Other)
  Sender: FDA-Public Use
  Company Number: None

PATIENT
  Age: 8 Year
  Sex: Male
  Weight: 24.4942 kg

DRUGS (2)
  1. TAMIFLU [Suspect]
     Indication: INFLUENZA IMMUNISATION
     Dosage: 45MG QD PO
     Route: 048
  2. AUGMENTIN ES-600 [Suspect]
     Indication: PHARYNGITIS STREPTOCOCCAL
     Dosage: 600MG BID PO
     Route: 048

REACTIONS (4)
  - ABNORMAL BEHAVIOUR [None]
  - DISORIENTATION [None]
  - DYSKINESIA [None]
  - SLEEP TALKING [None]
